FAERS Safety Report 9203117 (Version 1)
Quarter: 2013Q1

REPORT INFORMATION
  Report Type: Spontaneous
  Country: US (occurrence: None)
  Receive Date: 20120709
  Receipt Date: 20120709
  Transmission Date: 20140127
  Serious: Yes (Hospitalization)
  Sender: FDA-Public Use
  Company Number: PHHY2010US54225

PATIENT
  Sex: Male
  Weight: 74.4 kg

DRUGS (11)
  1. GLEEVEC (IMATINIB) [Suspect]
     Route: 048
  2. JANUVIA (SITAGLIPTIN PHOSPHATE) [Concomitant]
  3. ACTEYLCYSTEINE) SOLUTION [Concomitant]
  4. LISINOPRIL (LISINOPRIL) TABLET [Concomitant]
  5. GLIMEPIRIDE (GLIMEPIRIDE) TABLET [Concomitant]
  6. CRESTOR (ROSUVASTATIN CALCIUM) TABLET [Concomitant]
  7. ALLOPURINOL [Concomitant]
  8. FISH OIL (FISH OIL) CAPSULE [Concomitant]
  9. KEPPRA (LEVETIRACETAM) [Concomitant]
  10. MULTIVITAMIN (VITAMINS NOS )CAPSULE [Concomitant]
  11. ACETYLSALICYLIC ACID (ACETYLSALICYLIC ACID) TABLET [Concomitant]

REACTIONS (2)
  - Convulsion [None]
  - Myalgia [None]
